FAERS Safety Report 7627613-8 (Version None)
Quarter: 2011Q3

REPORT INFORMATION
  Report Type: 
  Country: None (occurrence: None)
  Receive Date: 20110721
  Receipt Date: 20110713
  Transmission Date: 20111222
  Serious: Yes (Death, Congenital Anomaly, Other)
  Sender: FDA-Public Use
  Company Number: US-PFIZER INC-2008049876

PATIENT
  Sex: Female
  Weight: 2.64 kg

DRUGS (11)
  1. ZOLOFT [Suspect]
     Indication: DEPRESSION
     Dosage: 50 MG, 1X/DAY
     Route: 064
  2. LEXAPRO [Concomitant]
     Dosage: 10 MG, 1X/DAY
     Dates: start: 20030629
  3. BENADRYL [Concomitant]
     Dosage: UNK
  4. PRENATAL VITAMINS [Concomitant]
     Dosage: UNK
     Dates: start: 20030629
  5. REGLAN [Concomitant]
     Dosage: 10 MG, UNK
     Dates: start: 20030811
  6. ZYRTEC [Concomitant]
     Dosage: 10 MG, UNK
     Dates: start: 20030902
  7. TYLENOL-500 [Concomitant]
     Dosage: UNK
  8. ROBITUSSIN ^ROBINS^ [Concomitant]
     Dosage: UNK
  9. ZITHROMAX [Concomitant]
     Dosage: UNK
     Dates: start: 20031104
  10. ZOLOFT [Suspect]
     Indication: ANXIETY
  11. KAOPECTATE [Concomitant]
     Dosage: UNK

REACTIONS (11)
  - MULTIPLE CONGENITAL ABNORMALITIES [None]
  - MITRAL VALVE HYPOPLASIA [None]
  - MATERNAL EXPOSURE DURING PREGNANCY [None]
  - LUNG DISORDER [None]
  - AORTIC VALVE STENOSIS [None]
  - PATENT DUCTUS ARTERIOSUS [None]
  - RIGHT VENTRICULAR HYPERTROPHY [None]
  - PERSISTENT FOETAL CIRCULATION [None]
  - ATRIOVENTRICULAR SEPTAL DEFECT [None]
  - HEPATIC CONGESTION [None]
  - RENAL TUBULAR NECROSIS [None]
